FAERS Safety Report 5268459-8 (Version None)
Quarter: 2007Q1

REPORT INFORMATION
  Report Type: 
  Country: None (occurrence: None)
  Receive Date: 20070313
  Receipt Date: 20070301
  Transmission Date: 20070707
  Serious: Yes (Hospitalization)
  Sender: FDA-Public Use
  Company Number: 2007BI004740

PATIENT
  Sex: Female

DRUGS (1)
  1. AVONEX [Suspect]
     Indication: DRUG USE FOR UNKNOWN INDICATION
     Dosage: IM
     Route: 030
     Dates: start: 19970101

REACTIONS (5)
  - ASTHENIA [None]
  - MYALGIA [None]
  - PYREXIA [None]
  - SURGERY [None]
  - THINKING ABNORMAL [None]
